FAERS Safety Report 26185441 (Version 1)
Quarter: 2025Q4

REPORT INFORMATION
  Report Type: Spontaneous
  Country: EU (occurrence: EU)
  Receive Date: 20251222
  Receipt Date: 20251222
  Transmission Date: 20260117
  Serious: Yes (Death, Other)
  Sender: AUROBINDO
  Company Number: EU-ABBVIE-6570285

PATIENT
  Age: 67 Year
  Sex: Female

DRUGS (16)
  1. AZACITIDINE [Suspect]
     Active Substance: AZACITIDINE
     Indication: Acute myeloid leukaemia
     Dosage: CYCLE 4END OF CYCLE(7 DAYS)
     Route: 065
     Dates: start: 20241210, end: 20241217
  2. AZACITIDINE [Suspect]
     Active Substance: AZACITIDINE
     Dosage: CYCLE1END OF CYCLE(7 DAYS)
     Route: 065
     Dates: start: 20240826, end: 20240903
  3. AZACITIDINE [Suspect]
     Active Substance: AZACITIDINE
     Dosage: CYCLE 2END OF CYCLE(7 DAYS)
     Route: 065
     Dates: start: 20240924, end: 20241002
  4. AZACITIDINE [Suspect]
     Active Substance: AZACITIDINE
     Dosage: CYCLE 3END OF CYCLE(7 DAYS)
     Route: 065
     Dates: start: 20241029, end: 20241104
  5. VENETOCLAX [Suspect]
     Active Substance: VENETOCLAX
     Indication: Acute myeloid leukaemia
     Dosage: 100 MILLIGRAM (CYCLE 1)
     Route: 061
     Dates: start: 20240826, end: 20240826
  6. VENETOCLAX [Suspect]
     Active Substance: VENETOCLAX
     Dosage: 200 MILLIGRAM (CYCLE 1)
     Route: 061
     Dates: start: 20240827, end: 20240827
  7. VENETOCLAX [Suspect]
     Active Substance: VENETOCLAX
     Dosage: CYCLE 1END OF CYCLE(28 DAYS)
     Route: 061
     Dates: start: 20240828, end: 20240922
  8. VENETOCLAX [Suspect]
     Active Substance: VENETOCLAX
     Dosage: 400 MILLIGRAM (CYCLE 2)
     Route: 061
     Dates: start: 20240924, end: 20241002
  9. VENETOCLAX [Suspect]
     Active Substance: VENETOCLAX
     Dosage: 0 MG, CYCLE 2
     Route: 061
     Dates: start: 20241003, end: 20241021
  10. VENETOCLAX [Suspect]
     Active Substance: VENETOCLAX
     Dosage: CYCLE 3END OF CYCLE(28 DAYS)
     Route: 061
     Dates: start: 20241029, end: 20241125
  11. VENETOCLAX [Suspect]
     Active Substance: VENETOCLAX
     Dosage: CYCLE 4END OF CYCLE(28 DAYS)
     Route: 061
     Dates: start: 20241210, end: 20250103
  12. ALLOPURINOL [Concomitant]
     Active Substance: ALLOPURINOL
     Indication: Prophylaxis
     Dosage: 300 MILLIGRAM, ONCE A DAY
     Route: 061
     Dates: start: 20240801, end: 20250117
  13. AMOXICILLIN\CLAVULANIC ACID [Concomitant]
     Active Substance: AMOXICILLIN\CLAVULANIC ACID
     Indication: Gingivitis
     Dosage: 875 MILLIGRAM, TWO TIMES A DAY
     Dates: start: 20241002, end: 20241008
  14. CEFIXIME [Concomitant]
     Active Substance: CEFIXIME
     Indication: Gingivitis
     Dosage: 400 MILLIGRAM, ONCE A DAY
     Route: 061
     Dates: start: 20241008, end: 20241022
  15. FIDAXOMICIN [Concomitant]
     Active Substance: FIDAXOMICIN
     Indication: Clostridium difficile infection
     Dosage: 200 MILLIGRAM, TWO TIMES A DAY
     Route: 061
     Dates: start: 20241113, end: 20241123
  16. FIDAXOMICIN [Concomitant]
     Active Substance: FIDAXOMICIN
     Indication: Clostridium difficile infection
     Dosage: 200 MILLIGRAM, TWO TIMES A DAY
     Route: 061
     Dates: start: 20250103, end: 20250119

REACTIONS (2)
  - Septic shock [Fatal]
  - Clostridium difficile infection [Recovered/Resolved with Sequelae]

NARRATIVE: CASE EVENT DATE: 20241113
